FAERS Safety Report 8397570-8 (Version None)
Quarter: 2012Q2

REPORT INFORMATION
  Report Type: 
  Country: None (occurrence: None)
  Receive Date: 20120524
  Receipt Date: 20120503
  Transmission Date: 20120825
  Serious: Yes (Hospitalization, Other)
  Sender: FDA-Public Use
  Company Number: 001225350A

PATIENT
  Age: 39 Year
  Sex: Male

DRUGS (4)
  1. LITHIUM [Concomitant]
  2. PROACTIV 90 DAY KIT [Suspect]
     Indication: ACNE
     Dosage: TWICE DAILY DERMAL
     Dates: start: 20120413, end: 20120415
  3. ADDERALL 10 [Concomitant]
  4. KLONOPIN [Concomitant]

REACTIONS (7)
  - THROAT TIGHTNESS [None]
  - APPARENT LIFE THREATENING EVENT [None]
  - STEVENS-JOHNSON SYNDROME [None]
  - RASH GENERALISED [None]
  - TONGUE OEDEMA [None]
  - DYSPNOEA [None]
  - PHARYNGEAL OEDEMA [None]
